FAERS Safety Report 5674815-6 (Version None)
Quarter: 2008Q1

REPORT INFORMATION
  Report Type: 
  Country: None (occurrence: None)
  Receive Date: 20080320
  Receipt Date: 20080312
  Transmission Date: 20080703
  Serious: Yes (Other)
  Sender: FDA-Public Use
  Company Number: JP-PFIZER INC-2008018123

PATIENT
  Sex: Female

DRUGS (3)
  1. TOLTERODINE TARTRATE [Suspect]
     Indication: NOCTURIA
     Route: 048
  2. ENTERONON [Concomitant]
     Route: 048
     Dates: start: 20080104, end: 20080204
  3. CIPROFLOXACIN [Concomitant]
     Route: 048
     Dates: start: 20080118, end: 20080131

REACTIONS (1)
  - HYPOKALAEMIA [None]
